FAERS Safety Report 15020271 (Version 1)
Quarter: 2018Q2

REPORT INFORMATION
  Report Type: Spontaneous
  Country: ZA (occurrence: ZA)
  Receive Date: 20180618
  Receipt Date: 20180618
  Transmission Date: 20180711
  Serious: Yes (Hospitalization, Other)
  Sender: FDA-Public Use
  Company Number: ZA-DRREDDYS-SAF/SAF/18/0100227

PATIENT
  Sex: Male

DRUGS (4)
  1. PEXOLA [Suspect]
     Active Substance: PRAMIPEXOLE DIHYDROCHLORIDE
     Indication: PARKINSON^S DISEASE
     Route: 048
  2. SERDEP (FLUOXETINE HYDROCHLORIDE) [Suspect]
     Active Substance: FLUOXETINE HYDROCHLORIDE
     Indication: DEPRESSION
     Route: 048
  3. ULTRACET [Suspect]
     Active Substance: ACETAMINOPHEN\TRAMADOL HYDROCHLORIDE
     Indication: PAIN
     Route: 048
  4. OMEZ [Suspect]
     Active Substance: OMEPRAZOLE
     Indication: ULCER
     Route: 048

REACTIONS (1)
  - Cholelithiasis [Unknown]
